FAERS Safety Report 6781433-5 (Version None)
Quarter: 2010Q2

REPORT INFORMATION
  Report Type: 
  Country: None (occurrence: None)
  Receive Date: 20100621
  Receipt Date: 20100611
  Transmission Date: 20101027
  Serious: Yes (Death)
  Sender: FDA-Public Use
  Company Number: US-ROCHE-689997

PATIENT
  Sex: Male

DRUGS (3)
  1. CAPECITABINE [Suspect]
     Route: 048
     Dates: start: 20090402
  2. BEVACIZUMAB [Suspect]
     Route: 042
     Dates: start: 20090402
  3. OXALIPLATIN [Concomitant]
     Route: 042
     Dates: start: 20090402

REACTIONS (1)
  - DEATH [None]
